FAERS Safety Report 15545980 (Version 1)
Quarter: 2018Q4

REPORT INFORMATION
  Report Type: Spontaneous
  Country: GB (occurrence: DE)
  Receive Date: 20181024
  Receipt Date: 20181024
  Transmission Date: 20190205
  Serious: Yes (Other)
  Sender: FDA-Public Use
  Company Number: DE-FRESENIUS KABI-FK201810888

PATIENT
  Sex: Female

DRUGS (3)
  1. PROPOFOL (MANUFACTURER UNKNOWN) [Suspect]
     Active Substance: PROPOFOL
     Indication: ANAESTHESIA
     Dosage: 200 MG, UNK
     Route: 065
     Dates: start: 20170403
  2. DOLANTIN [Interacting]
     Active Substance: MEPERIDINE
     Indication: ANAESTHESIA
     Dosage: 50 MG, UNK
     Route: 065
     Dates: start: 20170403
  3. GILENYA [Interacting]
     Active Substance: FINGOLIMOD HYDROCHLORIDE
     Indication: MULTIPLE SCLEROSIS
     Dosage: UNK
     Route: 065
     Dates: start: 2014

REACTIONS (5)
  - Drug interaction [Unknown]
  - Gait disturbance [Recovering/Resolving]
  - Nausea [Recovering/Resolving]
  - Vestibular disorder [Recovering/Resolving]
  - Multiple sclerosis relapse [Recovering/Resolving]

NARRATIVE: CASE EVENT DATE: 20170404
